FAERS Safety Report 9028799 (Version 2)
Quarter: 2013Q1

REPORT INFORMATION
  Report Type: Spontaneous
  Country: US (occurrence: US)
  Receive Date: 20130124
  Receipt Date: 20130205
  Transmission Date: 20140127
  Serious: Yes (Death)
  Sender: FDA-Public Use
  Company Number: US-BAYER-2013-007452

PATIENT
  Age: 38 Year
  Sex: Female

DRUGS (17)
  1. YAZ [Suspect]
  2. HUMALOG [Concomitant]
  3. PROZAC [Concomitant]
  4. LANTUS [Concomitant]
  5. LASIX [Concomitant]
  6. KCL [Concomitant]
  7. AMOXICILLIN [Concomitant]
  8. KEFLEX [Concomitant]
  9. CEFDINIR [Concomitant]
  10. ALBUTEROL [Concomitant]
     Indication: DYSPNOEA
     Dosage: 1-2 PUFFS EACH 4 HOURS AS NEEDED
     Route: 055
  11. ROCEPHIN [Concomitant]
     Dosage: 1 G, UNK
     Route: 040
  12. AZMACORT [Concomitant]
     Indication: DYSPNOEA
     Dosage: 2 PUFFS TWICE DAILY AS NEEDED
     Route: 055
  13. ERYTHROMYCIN ETHYLSUCCINATE [Concomitant]
     Dosage: 400 MG, EVERY 6 HOURS FOR 10 DAYS
  14. DECADRON [Concomitant]
     Dosage: 10 MG, UNK
     Route: 041
  15. CEPHALEXIN [Concomitant]
     Dosage: 500 MG, TAKE 2 PILLS 3 TIMES DAILY FOR THREE DAYS; THEN BID (INTERPRETED AS TWICE DAILY), 10 DAY SUP
  16. EPINEPHRINE [Concomitant]
     Dosage: 1 MG, UNK
  17. ATROPINE [Concomitant]
     Dosage: 1 MG, UNK

REACTIONS (1)
  - Pulmonary embolism [Fatal]
